FAERS Safety Report 4993421-X (Version None)
Quarter: 2006Q2

REPORT INFORMATION
  Report Type: 
  Country: None (occurrence: None)
  Receive Date: 20060505
  Receipt Date: 20060424
  Transmission Date: 20061013
  Serious: Yes (Death)
  Sender: FDA-Public Use
  Company Number: CZ-BRISTOL-MYERS SQUIBB COMPANY-13355771

PATIENT
  Age: 72 Year
  Sex: Female

DRUGS (5)
  1. AMIKIN [Suspect]
     Indication: INFECTION PROPHYLAXIS
     Dates: start: 20030729
  2. CIPLOX [Concomitant]
  3. MEFOXIN [Concomitant]
  4. PRIMOTREN [Concomitant]
  5. ENTIZOL [Concomitant]

REACTIONS (2)
  - GENERAL PHYSICAL HEALTH DETERIORATION [None]
  - WOUND DEHISCENCE [None]
